FAERS Safety Report 5340179-0 (Version None)
Quarter: 2007Q2

REPORT INFORMATION
  Report Type: 
  Country: None (occurrence: None)
  Receive Date: 20070531
  Receipt Date: 20070531
  Transmission Date: 20071010
  Serious: Yes (Hospitalization)
  Sender: FDA-Public Use
  Company Number: B0464408A

PATIENT
  Age: 20 Year
  Sex: Female

DRUGS (18)
  1. ZANTAC [Suspect]
     Route: 048
     Dates: start: 20070111, end: 20070201
  2. RUBOZINC [Suspect]
     Route: 065
     Dates: start: 20070223
  3. EFFEXOR [Suspect]
     Route: 048
     Dates: end: 20070215
  4. ATARAX [Concomitant]
     Route: 065
     Dates: start: 20070111, end: 20070226
  5. CALCIUM CARBONATE + CHOLECALCIFEROL [Concomitant]
     Route: 065
     Dates: start: 20070111, end: 20070226
  6. PHOCYTAN [Concomitant]
     Route: 065
     Dates: start: 20070213
  7. VITAMIN B1 B6 [Concomitant]
     Route: 065
     Dates: start: 20070213
  8. DIFFU-K [Concomitant]
     Route: 065
     Dates: start: 20070213
  9. IMODIUM [Concomitant]
     Route: 065
     Dates: start: 20070213
  10. TIORFAN [Concomitant]
     Dates: start: 20070201
  11. HEPTAMYL [Concomitant]
     Route: 065
     Dates: start: 20070213
  12. LOVENOX [Concomitant]
     Route: 065
     Dates: start: 20070111, end: 20070212
  13. MULTIVITAMIN [Concomitant]
     Route: 065
     Dates: start: 20070111, end: 20070212
  14. PHOSPHONEUROS [Concomitant]
     Route: 065
     Dates: start: 20070205, end: 20070212
  15. CERNEVIT-12 [Concomitant]
     Route: 065
     Dates: start: 20070205, end: 20070212
  16. UNKNOWN DRUG [Concomitant]
     Route: 065
     Dates: start: 20070205, end: 20070212
  17. ETHINYL ESTRADIOL AND LEVONORGESTREL [Concomitant]
     Route: 065
     Dates: start: 20070111, end: 20070201
  18. UNKNOWN OTC [Concomitant]
     Route: 065
     Dates: start: 20070111, end: 20070201

REACTIONS (3)
  - APLASTIC ANAEMIA [None]
  - NEUTROPENIA [None]
  - NORMOCHROMIC NORMOCYTIC ANAEMIA [None]
